FAERS Safety Report 21728044 (Version 1)
Quarter: 2022Q4

REPORT INFORMATION
  Report Type: Spontaneous
  Country: US (occurrence: US)
  Receive Date: 20221214
  Receipt Date: 20221214
  Transmission Date: 20230113
  Serious: No
  Sender: FDA-Public Use
  Company Number: US-PFIZER INC-202201366307

PATIENT
  Age: 68 Year
  Sex: Female
  Weight: 73.478 kg

DRUGS (3)
  1. METHOTREXATE SODIUM [Suspect]
     Active Substance: METHOTREXATE SODIUM
     Indication: Rheumatoid arthritis
     Dosage: UNK UNK, WEEKLY (25 MG, 0.7 ML)
     Dates: end: 202211
  2. PREDNISONE [Concomitant]
     Active Substance: PREDNISONE
     Dosage: 2 MG
  3. PREDNISONE [Concomitant]
     Active Substance: PREDNISONE
     Dosage: 8 MG

REACTIONS (2)
  - Therapeutic response unexpected [Unknown]
  - COVID-19 [Unknown]

NARRATIVE: CASE EVENT DATE: 20220101
